FAERS Safety Report 9190141 (Version 1)
Quarter: 2013Q1

REPORT INFORMATION
  Report Type: Spontaneous
  Country: US (occurrence: None)
  Receive Date: 20130325
  Receipt Date: 20130325
  Transmission Date: 20140127
  Serious: Yes (Life-Threatening, Other)
  Sender: FDA-Public Use
  Company Number: None

PATIENT
  Age: 58 Year
  Sex: Female

DRUGS (3)
  1. LEVOFLOXACIN [Suspect]
     Indication: URINARY TRACT INFECTION
     Dosage: 500MG  1 PILL / 10 DAYS
     Dates: start: 20130131
  2. BACTRIM [Concomitant]
  3. MACROBID [Concomitant]

REACTIONS (8)
  - Tremor [None]
  - Heart rate irregular [None]
  - Restlessness [None]
  - Insomnia [None]
  - Asthenia [None]
  - Dizziness [None]
  - Feeling abnormal [None]
  - Crying [None]
